FAERS Safety Report 8560689-2 (Version None)
Quarter: 2012Q3

REPORT INFORMATION
  Report Type: 
  Country: None (occurrence: None)
  Receive Date: 20120802
  Receipt Date: 20120727
  Transmission Date: 20120928
  Serious: Yes (Other)
  Sender: FDA-Public Use
  Company Number: PHHY2011CA88840

PATIENT
  Sex: Female
  Weight: 56.689 kg

DRUGS (1)
  1. GILENYA [Suspect]
     Indication: RELAPSING-REMITTING MULTIPLE SCLEROSIS
     Dosage: 0.5 MG, DAILY
     Route: 048
     Dates: start: 20110510

REACTIONS (5)
  - HYPOAESTHESIA [None]
  - MULTIPLE SCLEROSIS [None]
  - WEIGHT INCREASED [None]
  - BACK PAIN [None]
  - CEREBROVASCULAR INSUFFICIENCY [None]
